FAERS Safety Report 6309553-X (Version None)
Quarter: 2009Q3

REPORT INFORMATION
  Report Type: 
  Country: None (occurrence: None)
  Receive Date: 20090814
  Receipt Date: 20090804
  Transmission Date: 20100115
  Serious: Yes (Hospitalization)
  Sender: FDA-Public Use
  Company Number: TW-JNJFOC-20090802941

PATIENT
  Age: 18 Year
  Sex: Male

DRUGS (8)
  1. RISPERDAL [Suspect]
     Indication: DRUG USE FOR UNKNOWN INDICATION
     Dosage: 1 MG AMPC, 2 MG HS
     Route: 065
  2. TRIHEXYPHENIDYL [Suspect]
     Indication: DRUG USE FOR UNKNOWN INDICATION
     Route: 065
  3. CHLORPROMAZINE [Suspect]
     Indication: DRUG USE FOR UNKNOWN INDICATION
     Route: 065
  4. CLONAZEPAM [Suspect]
     Indication: DRUG USE FOR UNKNOWN INDICATION
     Route: 065
  5. ALPRAZOLAM [Suspect]
     Indication: DRUG USE FOR UNKNOWN INDICATION
     Dosage: 0.25
     Route: 065
  6. PROPRANOLOL [Suspect]
     Indication: DRUG USE FOR UNKNOWN INDICATION
     Route: 065
  7. ZOTEPINE [Suspect]
     Indication: PSYCHOTIC DISORDER
     Route: 065
  8. HALOPERIDOL [Concomitant]
     Indication: AGITATION
     Route: 042

REACTIONS (16)
  - AGITATION [None]
  - BACTERIAL CULTURE POSITIVE [None]
  - BRADYPHRENIA [None]
  - CATATONIA [None]
  - CONDITION AGGRAVATED [None]
  - DISTURBANCE IN ATTENTION [None]
  - DYSPHONIA [None]
  - ELECTROENCEPHALOGRAM ABNORMAL [None]
  - EXTRAPYRAMIDAL DISORDER [None]
  - INITIAL INSOMNIA [None]
  - MENTAL STATUS CHANGES [None]
  - MUTISM [None]
  - NEUROLEPTIC MALIGNANT SYNDROME [None]
  - PNEUMONIA ASPIRATION [None]
  - PSYCHOTIC DISORDER [None]
  - URINARY RETENTION [None]
